FAERS Safety Report 6038126-1 (Version None)
Quarter: 2009Q1

REPORT INFORMATION
  Report Type: 
  Country: None (occurrence: None)
  Receive Date: 20090112
  Receipt Date: 20090112
  Transmission Date: 20090719
  Serious: Yes (Death)
  Sender: FDA-Public Use
  Company Number: None

PATIENT
  Age: 71 Year
  Sex: Female
  Weight: 72 kg

DRUGS (3)
  1. WARFARIN SODIUM [Suspect]
  2. CLOPIDOGREL [Suspect]
  3. MELOXICAM [Suspect]

REACTIONS (3)
  - CARDIO-RESPIRATORY ARREST [None]
  - HAEMORRHAGE [None]
  - INTERNATIONAL NORMALISED RATIO INCREASED [None]
